FAERS Safety Report 5007393-5 (Version None)
Quarter: 2006Q2

REPORT INFORMATION
  Report Type: 
  Country: None (occurrence: None)
  Receive Date: 20060517
  Receipt Date: 20060508
  Transmission Date: 20061013
  Serious: Yes (Hospitalization)
  Sender: FDA-Public Use
  Company Number: 2006062878

PATIENT

DRUGS (1)
  1. ZIPRASIDONE HCL [Suspect]
     Indication: ILL-DEFINED DISORDER
     Dosage: 80 MG (40 MG, 2 IN 1 D), ORAL
     Route: 048

REACTIONS (2)
  - CARDIOVASCULAR DISORDER [None]
  - TREMOR [None]
